FAERS Safety Report 4950010-0 (Version None)
Quarter: 2006Q1

REPORT INFORMATION
  Report Type: 
  Country: None (occurrence: None)
  Receive Date: 20060315
  Receipt Date: 20060301
  Transmission Date: 20060701
  Serious: Yes (Death, Other)
  Sender: FDA-Public Use
  Company Number: FR200603000692

PATIENT
  Age: 45 Year
  Sex: Female

DRUGS (4)
  1. ZYPREXA [Suspect]
     Dosage: ORAL
     Route: 048
     Dates: start: 20051001, end: 20060103
  2. NOCTAMID (LORMETAZEPAM) [Concomitant]
  3. TRANXENE [Concomitant]
  4. STABLON (TIANEPTINE) [Concomitant]

REACTIONS (2)
  - CARDIAC ARREST [None]
  - SYNCOPE [None]
